FAERS Safety Report 10552422 (Version 1)
Quarter: 2014Q4

REPORT INFORMATION
  Report Type: Spontaneous
  Country: US (occurrence: None)
  Receive Date: 20141023
  Receipt Date: 20141023
  Transmission Date: 20150529
  Serious: No
  Sender: FDA-Public Use
  Company Number: AP356-01029-SPO-US

PATIENT
  Age: 57 Year
  Sex: Female
  Weight: 81.8 kg

DRUGS (4)
  1. TRILIPIX [Concomitant]
     Active Substance: FENOFIBRIC ACID
  2. COZAAR [Concomitant]
     Active Substance: LOSARTAN POTASSIUM
  3. SYNTHROID [Concomitant]
     Active Substance: LEVOTHYROXINE SODIUM
  4. BELVIQ [Suspect]
     Active Substance: LORCASERIN HYDROCHLORIDE
     Indication: WEIGHT DECREASED
     Route: 048
     Dates: start: 201406, end: 201406

REACTIONS (2)
  - Headache [None]
  - Dizziness [None]

NARRATIVE: CASE EVENT DATE: 201406
